FAERS Safety Report 25143978 (Version 1)
Quarter: 2025Q2

REPORT INFORMATION
  Report Type: Spontaneous
  Country: US (occurrence: US)
  Receive Date: 20250401
  Receipt Date: 20250401
  Transmission Date: 20250716
  Serious: Yes (Death, Life-Threatening, Other)
  Sender: RANBAXY
  Company Number: US-SUN PHARMACEUTICAL INDUSTRIES LTD-2025R1-500261

PATIENT
  Age: 58 Year
  Sex: Male

DRUGS (4)
  1. FLUOROURACIL [Suspect]
     Active Substance: FLUOROURACIL
     Indication: Colorectal cancer
     Route: 065
  2. FLUOROURACIL [Suspect]
     Active Substance: FLUOROURACIL
     Route: 065
  3. OXALIPLATIN [Concomitant]
     Active Substance: OXALIPLATIN
     Indication: Colorectal cancer
     Route: 065
  4. LEUCOVORIN [Concomitant]
     Active Substance: LEUCOVORIN\LEUCOVORIN CALCIUM
     Indication: Colorectal cancer
     Route: 065

REACTIONS (10)
  - Toxicity to various agents [Fatal]
  - Cardiac arrest [Fatal]
  - Neutropenic colitis [Unknown]
  - Atrial fibrillation [Unknown]
  - Middle cerebral artery stroke [Unknown]
  - Colitis [Unknown]
  - Acute respiratory distress syndrome [Unknown]
  - Blood lactic acid increased [Unknown]
  - Renal failure [Unknown]
  - Myelosuppression [Unknown]
